FAERS Safety Report 9217158 (Version 3)
Quarter: 2013Q2

REPORT INFORMATION
  Report Type: Report from Study
  Country: US (occurrence: US)
  Receive Date: 20130408
  Receipt Date: 20130619
  Transmission Date: 20140414
  Serious: Yes (Hospitalization, Other)
  Sender: FDA-Public Use
  Company Number: US-ABBOTT-13P-163-1071326-00

PATIENT
  Age: 64 Year
  Sex: Female

DRUGS (8)
  1. HUMIRA [Suspect]
     Indication: PSORIASIS
     Dates: start: 2010
  2. HUMIRA [Suspect]
     Dates: start: 201301
  3. PROTONIX [Concomitant]
     Indication: PRODUCT USED FOR UNKNOWN INDICATION
  4. STOOL SOFTENER [Concomitant]
     Indication: PRODUCT USED FOR UNKNOWN INDICATION
  5. NAPROXEN [Concomitant]
     Indication: PAIN
  6. TRIAMTERENE [Concomitant]
     Indication: FLUID RETENTION
     Dosage: 37.5 MG DAILY
  7. LIBRAX [Concomitant]
     Indication: PROPHYLAXIS
  8. LIBRAX [Concomitant]
     Indication: DIVERTICULITIS

REACTIONS (11)
  - Benign neoplasm [Recovering/Resolving]
  - Blister [Unknown]
  - Post procedural fistula [Unknown]
  - Blister [Unknown]
  - Drug ineffective [Recovered/Resolved]
  - Impaired healing [Unknown]
  - Furuncle [Unknown]
  - Fatigue [Not Recovered/Not Resolved]
  - Depression [Not Recovered/Not Resolved]
  - Blister [Not Recovered/Not Resolved]
  - Rash pustular [Not Recovered/Not Resolved]
